FAERS Safety Report 9530883 (Version 2)
Quarter: 2013Q4

REPORT INFORMATION
  Report Type: Spontaneous
  Country: US (occurrence: US)
  Receive Date: 20130918
  Receipt Date: 20131016
  Transmission Date: 20140711
  Serious: No
  Sender: FDA-Public Use
  Company Number: US-009507513-1309USA005453

PATIENT
  Age: 29 Year
  Sex: Female
  Weight: 82.86 kg

DRUGS (1)
  1. DULERA [Suspect]
     Dosage: UNK
     Route: 055
     Dates: start: 20130812, end: 2013

REACTIONS (1)
  - Urticaria [Recovered/Resolved]
